FAERS Safety Report 6355511-9 (Version None)
Quarter: 2009Q3

REPORT INFORMATION
  Report Type: 
  Country: None (occurrence: None)
  Receive Date: 20090914
  Receipt Date: 20090904
  Transmission Date: 20100115
  Serious: Yes (Other)
  Sender: FDA-Public Use
  Company Number: US-JNJCH-2009024082

PATIENT
  Age: 16 Year
  Sex: Male
  Weight: 131.5 kg

DRUGS (1)
  1. PURELL WITH ALOE [Suspect]
     Indication: ANTIBIOTIC PROPHYLAXIS
     Dosage: TEXT:ONE OR TWO SQUIRT ONCE
     Route: 061
     Dates: start: 20090903, end: 20090903

REACTIONS (2)
  - OEDEMA PERIPHERAL [None]
  - PRURITUS [None]
